FAERS Safety Report 5075366-2 (Version None)
Quarter: 2006Q3

REPORT INFORMATION
  Report Type: 
  Country: None (occurrence: None)
  Receive Date: 20060807
  Receipt Date: 20060807
  Transmission Date: 20061208
  Serious: Yes (Other)
  Sender: FDA-Public Use
  Company Number: None

PATIENT
  Age: 37 Year
  Sex: Male
  Weight: 79.3795 kg

DRUGS (1)
  1. PROVENTIL-HFA [Suspect]
     Indication: DYSPNOEA
     Dosage: 2 PUFFS     EVERY 4 TO 6 HOURS   PO
     Route: 048
     Dates: start: 20060801, end: 20060802

REACTIONS (2)
  - EYELID OEDEMA [None]
  - SWELLING FACE [None]
